FAERS Safety Report 10060977 (Version 1)
Quarter: 2014Q2

REPORT INFORMATION
  Report Type: Spontaneous
  Country: US (occurrence: US)
  Receive Date: 20140405
  Receipt Date: 20140405
  Transmission Date: 20141212
  Serious: Yes (Death)
  Sender: FDA-Public Use
  Company Number: US-ROCHE-1376961

PATIENT
  Age: 56 Year
  Sex: Male

DRUGS (2)
  1. XELODA [Suspect]
     Indication: OESOPHAGEAL CARCINOMA
     Dosage: TAKE 3 DAILY, 14 D ON, 7 D OFF
     Route: 048
     Dates: start: 20140121, end: 20140131
  2. XELODA [Suspect]
     Dosage: TAKE 4 DAILY, 14 D ON, 7 D OFF
     Route: 048
     Dates: start: 20140121, end: 20140131

REACTIONS (1)
  - Death [Fatal]
